FAERS Safety Report 16846828 (Version 3)
Quarter: 2020Q3

REPORT INFORMATION
  Report Type: Report from Study
  Country: None (occurrence: SE)
  Receive Date: 20190924
  Receipt Date: 20200817
  Transmission Date: 20201102
  Serious: Yes (Other)
  Sender: FDA-Public Use
  Company Number: SE-BIOVITRUM-2015SE0595

PATIENT
  Age: 12 Year
  Sex: Female

DRUGS (5)
  1. ORFADIN [Suspect]
     Active Substance: NITISINONE
     Dosage: 1.05 MG/KG, WEIGHT 56.9 KG
     Dates: end: 20190902
  2. ORFADIN [Suspect]
     Active Substance: NITISINONE
     Dosage: 0.54 MG/KG, WEIGHT 56 KG
     Dates: start: 20160822, end: 20180915
  3. ORFADIN [Suspect]
     Active Substance: NITISINONE
     Indication: TYROSINAEMIA
     Dosage: 0.33 MG/KG, WEIGHT 24 KG
     Route: 065
     Dates: start: 20020802, end: 20160822
  4. ORFADIN [Suspect]
     Active Substance: NITISINONE
     Dosage: 1.24 MG/KG, WEIGHT 64.5 KG
     Dates: start: 20190902
  5. ORFADIN [Suspect]
     Active Substance: NITISINONE
     Dates: start: 20190916

REACTIONS (5)
  - Cognitive disorder [Unknown]
  - Educational problem [Unknown]
  - Alpha 1 foetoprotein increased [Unknown]
  - Amino acid level increased [Not Recovered/Not Resolved]
  - Succinylacetone increased [Unknown]

NARRATIVE: CASE EVENT DATE: 20140616
